FAERS Safety Report 21350724 (Version 1)
Quarter: 2022Q3

REPORT INFORMATION
  Report Type: Spontaneous
  Country: US (occurrence: US)
  Receive Date: 20220919
  Receipt Date: 20220919
  Transmission Date: 20221027
  Serious: No
  Sender: FDA-Public Use
  Company Number: US-PROGENICS PHARMACEUTICALS/LANTHEUS HOLDINGS-LMI-2021-01003

PATIENT
  Sex: Female

DRUGS (1)
  1. AZEDRA [Suspect]
     Active Substance: IOBENGUANE I-131
     Indication: Product used for unknown indication
     Dosage: UNK
     Dates: start: 20210601, end: 20210601

REACTIONS (1)
  - White blood cell count decreased [Unknown]
